FAERS Safety Report 15932231 (Version 1)
Quarter: 2019Q1

REPORT INFORMATION
  Report Type: Spontaneous
  Country: US (occurrence: US)
  Receive Date: 20190207
  Receipt Date: 20190207
  Transmission Date: 20190417
  Serious: No
  Sender: FDA-Public Use
  Company Number: US-PFIZER INC-2019056166

PATIENT
  Age: 74 Year
  Sex: Female

DRUGS (5)
  1. MISOPROSTOL. [Suspect]
     Active Substance: MISOPROSTOL
     Dosage: UNK
  2. NAPROXEN. [Suspect]
     Active Substance: NAPROXEN
     Dosage: UNK
  3. GLUCOSAMINE [Suspect]
     Active Substance: GLUCOSAMINE
     Dosage: UNK
  4. ERYTHROMYCIN. [Suspect]
     Active Substance: ERYTHROMYCIN
     Dosage: UNK
  5. DICLOFENAC EPOLAMINE [Suspect]
     Active Substance: DICLOFENAC EPOLAMINE
     Dosage: UNK

REACTIONS (1)
  - Drug hypersensitivity [Unknown]
